FAERS Safety Report 16265894 (Version 1)
Quarter: 2019Q2

REPORT INFORMATION
  Report Type: Spontaneous
  Country: ES (occurrence: ES)
  Receive Date: 20190502
  Receipt Date: 20190502
  Transmission Date: 20190711
  Serious: Yes (Hospitalization, Other)
  Sender: FDA-Public Use
  Company Number: ES-MYLANLABS-2019M1041535

PATIENT
  Age: 51 Year
  Sex: Male

DRUGS (5)
  1. HYOSCINE BUTYLBROMIDE [Suspect]
     Active Substance: BUTYLSCOPOLAMINE BROMIDE
     Indication: ABDOMINAL PAIN
     Dosage: 20 MG, ENDOVENOUS ADMINISTRATION
  2. HYOSCINE BUTYLBROMIDE [Suspect]
     Active Substance: BUTYLSCOPOLAMINE BROMIDE
     Indication: BILIARY COLIC
  3. METOCLOPRAMIDE HYDROCHLORIDE. [Suspect]
     Active Substance: METOCLOPRAMIDE HYDROCHLORIDE
     Indication: BILIARY COLIC
     Dosage: 10 MG, ENDOVENOUS ADMINISTRATION
  4. METAMIZOLE [Suspect]
     Active Substance: METAMIZOLE
     Indication: BILIARY COLIC
     Dosage: 2 G, ENDOVENOUS ADMINISTRATION
  5. PANTOPRAZOLE [Suspect]
     Active Substance: PANTOPRAZOLE
     Indication: BILIARY COLIC
     Dosage: 40 MG, ENDOVENOUS ADMINISTRATION

REACTIONS (12)
  - Kounis syndrome [Recovered/Resolved]
  - Malaise [Recovered/Resolved]
  - Hypersensitivity [Recovered/Resolved]
  - Cardio-respiratory arrest [Recovered/Resolved]
  - Troponin increased [Recovered/Resolved]
  - Loss of consciousness [Recovered/Resolved]
  - Hyperhidrosis [Recovered/Resolved]
  - Hypotension [Recovered/Resolved]
  - Electrocardiogram ST segment [Recovered/Resolved]
  - Rash [Recovered/Resolved]
  - Abdominal pain upper [Recovered/Resolved]
  - Vomiting [Recovered/Resolved]
